FAERS Safety Report 4984068-X (Version None)
Quarter: 2006Q1

REPORT INFORMATION
  Report Type: 
  Country: None (occurrence: None)
  Receive Date: 20060306
  Receipt Date: 20060124
  Transmission Date: 20060701
  Serious: No
  Sender: FDA-Public Use
  Company Number: 33882

PATIENT

DRUGS (1)
  1. NEVANAC [Suspect]
     Indication: PROPHYLAXIS

REACTIONS (2)
  - IMPAIRED HEALING [None]
  - VISION BLURRED [None]
